FAERS Safety Report 10146796 (Version 4)
Quarter: 2014Q3

REPORT INFORMATION
  Report Type: Spontaneous
  Country: IT (occurrence: None)
  Receive Date: 20140429
  Receipt Date: 20140808
  Transmission Date: 20150326
  Serious: Yes (Hospitalization)
  Sender: FDA-Public Use
  Company Number: AUR-APL-2014-05067

PATIENT
  Age: 69 Year
  Sex: Male
  Weight: 70 kg

DRUGS (2)
  1. LANOXIN [Concomitant]
     Active Substance: DIGOXIN
  2. METFORMIN [Suspect]
     Active Substance: METFORMIN HYDROCHLORIDE
     Indication: TYPE 2 DIABETES MELLITUS
     Dosage: 1 DOSAGE FORMS, TOTAL, ORAL
     Route: 048
     Dates: start: 20080719, end: 20130719

REACTIONS (13)
  - Diarrhoea [None]
  - Drug level increased [None]
  - Anuria [None]
  - Dehydration [None]
  - Bradycardia [None]
  - Cardiac arrest [None]
  - Lactic acidosis [None]
  - Drug level decreased [None]
  - Renal impairment [None]
  - Blood potassium increased [None]
  - Cardiac disorder [None]
  - Vomiting [None]
  - Dialysis [None]

NARRATIVE: CASE EVENT DATE: 20130719
